FAERS Safety Report 23609471 (Version 1)
Quarter: 2024Q1

REPORT INFORMATION
  Report Type: Report from Study
  Country: BR (occurrence: BR)
  Receive Date: 20240308
  Receipt Date: 20240308
  Transmission Date: 20240409
  Serious: Yes (Hospitalization, Other)
  Sender: FDA-Public Use
  Company Number: BR-CELLTRION INC.-2024BR005413

PATIENT

DRUGS (7)
  1. TRUXIMA [Suspect]
     Active Substance: RITUXIMAB-ABBS
     Indication: Myasthenia gravis
     Dosage: 2 AMPOULES EVERY 4 MONTHS
     Route: 042
     Dates: start: 202202
  2. TRUXIMA [Suspect]
     Active Substance: RITUXIMAB-ABBS
     Dosage: 2 AMPOULES EVERY 4 MONTHS
     Route: 042
     Dates: start: 202208
  3. TRUXIMA [Suspect]
     Active Substance: RITUXIMAB-ABBS
     Dosage: 2 AMPOULES EVERY 4 MONTHS
     Route: 042
     Dates: start: 20230815
  4. TRUXIMA [Suspect]
     Active Substance: RITUXIMAB-ABBS
     Dosage: 2 AMPOULES EVERY 4 MONTHS
     Route: 042
     Dates: start: 20230905
  5. TRUXIMA [Suspect]
     Active Substance: RITUXIMAB-ABBS
     Dosage: 2 AMPOULES EVERY 4 MONTHS
     Route: 042
     Dates: start: 20240219
  6. BUPROPION [Concomitant]
     Active Substance: BUPROPION
     Indication: Depression
     Dosage: 1 PILL A DAY (3 YEARS)
     Route: 048
  7. AZATHIOPRINE [Concomitant]
     Active Substance: AZATHIOPRINE
     Indication: Myasthenia gravis
     Dosage: 3 PILLS A DAY (2 YEARS)
     Route: 048

REACTIONS (5)
  - Myasthenia gravis crisis [Recovered/Resolved]
  - Therapy partial responder [Recovered/Resolved]
  - Incorrect dose administered [Recovered/Resolved]
  - Somnolence [Unknown]
  - Off label use [Unknown]
